FAERS Safety Report 6111528-0 (Version None)
Quarter: 2009Q1

REPORT INFORMATION
  Report Type: 
  Country: None (occurrence: None)
  Receive Date: 20090309
  Receipt Date: 20090225
  Transmission Date: 20090719
  Serious: Yes (Hospitalization, Other)
  Sender: FDA-Public Use
  Company Number: 2008-03897

PATIENT
  Age: 69 Year
  Sex: Female
  Weight: 50 kg

DRUGS (7)
  1. VELCADE [Suspect]
     Dosage: 1.9 MG, INTRAVENOUS : 1.4 MG, INTRAVENOUS : 1.4 MG, INTRAVENOUS
     Route: 042
     Dates: start: 20071022, end: 20071213
  2. VELCADE [Suspect]
     Dosage: 1.9 MG, INTRAVENOUS : 1.4 MG, INTRAVENOUS : 1.4 MG, INTRAVENOUS
     Route: 042
     Dates: start: 20080108, end: 20080918
  3. CIPROFLOXACIN HCL [Concomitant]
  4. DIFLUCAN [Concomitant]
  5. PREDONINE [Concomitant]
  6. FAMOTIDINE [Concomitant]
  7. LENDORM [Concomitant]

REACTIONS (6)
  - COLLAPSE OF LUNG [None]
  - DIZZINESS [None]
  - FALL [None]
  - NEUROPATHY PERIPHERAL [None]
  - PLATELET COUNT DECREASED [None]
  - SUBARACHNOID HAEMORRHAGE [None]
